FAERS Safety Report 5734346-1 (Version None)
Quarter: 2008Q2

REPORT INFORMATION
  Report Type: 
  Country: None (occurrence: None)
  Receive Date: 20080508
  Receipt Date: 20080508
  Transmission Date: 20081010
  Serious: Yes (Life-Threatening)
  Sender: FDA-Public Use
  Company Number: None

PATIENT
  Age: 79 Year
  Sex: Female
  Weight: 50 kg

DRUGS (1)
  1. LEVOPHED [Suspect]

REACTIONS (3)
  - MEDICATION ERROR [None]
  - VENTRICULAR TACHYCARDIA [None]
  - WRONG DRUG ADMINISTERED [None]
